FAERS Safety Report 18124976 (Version 4)
Quarter: 2020Q4

REPORT INFORMATION
  Report Type: Spontaneous
  Country: GB (occurrence: GB)
  Receive Date: 20200807
  Receipt Date: 20201223
  Transmission Date: 20210113
  Serious: Yes (Hospitalization, Other)
  Sender: FDA-Public Use
  Company Number: GB-REGENERON PHARMACEUTICALS, INC.-2020-63842

PATIENT

DRUGS (11)
  1. EYLEA [Suspect]
     Active Substance: AFLIBERCEPT
     Indication: PRODUCT USED FOR UNKNOWN INDICATION
     Dosage: 1 DF, ONCE (RIGHT EYE)
     Route: 031
  2. AMLODIPINE [Concomitant]
     Active Substance: AMLODIPINE BESYLATE
     Indication: PRODUCT USED FOR UNKNOWN INDICATION
     Dosage: 10 MG
  3. EYLEA [Suspect]
     Active Substance: AFLIBERCEPT
     Dosage: 1 DF, ONCE (RIGHT EYE)
     Route: 031
     Dates: start: 20200302, end: 20200302
  4. ATORVASTATIN [Concomitant]
     Active Substance: ATORVASTATIN
     Indication: PRODUCT USED FOR UNKNOWN INDICATION
     Dosage: 20 MG
  5. EYLEA [Suspect]
     Active Substance: AFLIBERCEPT
     Indication: PRODUCT USED FOR UNKNOWN INDICATION
     Dosage: 1 DF, ONCE (RIGHT EYE)
     Route: 031
     Dates: start: 20200612, end: 20200612
  6. LANSOPRAZOLE. [Concomitant]
     Active Substance: LANSOPRAZOLE
     Indication: PRODUCT USED FOR UNKNOWN INDICATION
     Dosage: 30 MG
  7. LATANOPROST. [Concomitant]
     Active Substance: LATANOPROST
     Indication: OCULAR HYPERTENSION
     Dosage: UNK
  8. FUROSEMIDE. [Concomitant]
     Active Substance: FUROSEMIDE
     Indication: PRODUCT USED FOR UNKNOWN INDICATION
     Dosage: 40 MG
  9. EYLEA [Suspect]
     Active Substance: AFLIBERCEPT
     Dosage: TOTAL OF 10 DOSES (RIGHT EYE)
     Route: 031
     Dates: start: 20180118, end: 20200302
  10. PERINDOPRIL [Concomitant]
     Active Substance: PERINDOPRIL
     Indication: PRODUCT USED FOR UNKNOWN INDICATION
     Dosage: 8 MG
  11. ASPIRIN                            /00002701/ [Concomitant]
     Active Substance: ASPIRIN
     Indication: PRODUCT USED FOR UNKNOWN INDICATION
     Dosage: 75 MG

REACTIONS (11)
  - Blindness transient [Recovered/Resolved]
  - Vitreous floaters [Recovered/Resolved]
  - Headache [Recovered/Resolved]
  - Intraocular pressure increased [Recovered/Resolved]
  - Vitreous floaters [Recovered/Resolved]
  - Intraocular pressure increased [Recovered/Resolved]
  - Device use issue [Unknown]
  - Headache [Recovered/Resolved]
  - Intraocular pressure increased [Recovered/Resolved]
  - Vision blurred [Recovered/Resolved]
  - Vision blurred [Recovered/Resolved]

NARRATIVE: CASE EVENT DATE: 20200302
